FAERS Safety Report 12868405 (Version 3)
Quarter: 2017Q1

REPORT INFORMATION
  Report Type: Spontaneous
  Country: US (occurrence: US)
  Receive Date: 20161020
  Receipt Date: 20170124
  Transmission Date: 20170428
  Serious: No
  Sender: FDA-Public Use
  Company Number: US-AMGEN-USASP2016119025

PATIENT
  Age: 53 Year
  Sex: Male
  Weight: 92.3 kg

DRUGS (2)
  1. REPATHA [Suspect]
     Active Substance: EVOLOCUMAB
     Indication: HYPERLIPIDAEMIA
  2. REPATHA [Suspect]
     Active Substance: EVOLOCUMAB
     Indication: TYPE IIA HYPERLIPIDAEMIA
     Dosage: 140 MG, UNK
     Route: 065
     Dates: start: 20160113

REACTIONS (2)
  - Incorrect product storage [Unknown]
  - Drug dose omission [Unknown]

NARRATIVE: CASE EVENT DATE: 20160803
